FAERS Safety Report 7688972-3 (Version None)
Quarter: 2011Q3

REPORT INFORMATION
  Report Type: 
  Country: None (occurrence: None)
  Receive Date: 20110817
  Receipt Date: 20110812
  Transmission Date: 20111222
  Serious: Yes (Death)
  Sender: FDA-Public Use
  Company Number: PHEH2011US01607

PATIENT

DRUGS (1)
  1. SANDOSTATIN LAR [Suspect]
     Dosage: 30 MG
     Route: 030

REACTIONS (1)
  - DEATH [None]
